FAERS Safety Report 8423603-6 (Version None)
Quarter: 2012Q2

REPORT INFORMATION
  Report Type: 
  Country: None (occurrence: None)
  Receive Date: 20120608
  Receipt Date: 20120604
  Transmission Date: 20120825
  Serious: No
  Sender: FDA-Public Use
  Company Number: US-ASTRAZENECA-2012SE28299

PATIENT
  Sex: Male
  Weight: 81.2 kg

DRUGS (4)
  1. METFORMIN HYDROCHLORIDE [Concomitant]
  2. SYMBICORT [Suspect]
     Dosage: 160/4.5 MCG, DURING ALLERGY SEASON
     Route: 055
  3. GLIPIZIDE [Concomitant]
  4. SYMBICORT [Suspect]
     Indication: ASTHMA
     Dosage: 80/4.5 MCG, 2 PUFFS, BID
     Route: 055

REACTIONS (3)
  - DRUG DOSE OMISSION [None]
  - DYSPNOEA [None]
  - WHEEZING [None]
